FAERS Safety Report 9287896 (Version 2)
Quarter: 2013Q2

REPORT INFORMATION
  Report Type: Spontaneous
  Country: CN (occurrence: CN)
  Receive Date: 20130514
  Receipt Date: 20130523
  Transmission Date: 20140414
  Serious: Yes (Other)
  Sender: FDA-Public Use
  Company Number: CN-ASTELLAS-2013JP005787

PATIENT
  Age: 45 Year
  Sex: Female

DRUGS (4)
  1. PROTOPIC [Suspect]
     Indication: DERMATITIS CONTACT
     Dosage: 0.03 %, UNK
     Route: 061
     Dates: start: 20130506, end: 20130507
  2. GLYCYRRHIZIN                       /01125801/ [Concomitant]
     Indication: DERMATITIS CONTACT
     Dosage: UNK
     Route: 048
     Dates: start: 20130506
  3. SALINE                             /00075401/ [Concomitant]
     Indication: DERMATITIS CONTACT
     Dosage: UNK
     Route: 065
     Dates: start: 20130506
  4. MIZOLASTINE [Concomitant]
     Indication: DERMATITIS CONTACT
     Dosage: UNK
     Route: 048
     Dates: start: 20130506

REACTIONS (5)
  - Intentional drug misuse [Unknown]
  - Application site pruritus [Recovered/Resolved]
  - Flushing [Recovered/Resolved]
  - Application site swelling [Recovered/Resolved]
  - Application site pain [Recovered/Resolved]
